FAERS Safety Report 5328607-8 (Version None)
Quarter: 2007Q2

REPORT INFORMATION
  Report Type: 
  Country: None (occurrence: None)
  Receive Date: 20070514
  Receipt Date: 20070427
  Transmission Date: 20071010
  Serious: Yes (Hospitalization)
  Sender: FDA-Public Use
  Company Number: 2007EU000141

PATIENT
  Age: 60 Year
  Sex: Female

DRUGS (2)
  1. PROGRAF [Suspect]
     Indication: RENAL TRANSPLANT
     Dosage: 1 MG, /D, ORAL
     Route: 048
     Dates: start: 20000201
  2. TIENAM(IMIPENEM, CILASTATIN SODIUM) [Suspect]
     Dosage: /D

REACTIONS (15)
  - CONVULSION [None]
  - DISEASE RECURRENCE [None]
  - DRUG INTERACTION [None]
  - EFFUSION [None]
  - ENTEROCOCCAL SEPSIS [None]
  - HAEMORRHAGIC STROKE [None]
  - HEMIPLEGIA [None]
  - IMMUNOSUPPRESSANT DRUG LEVEL INCREASED [None]
  - INCORRECT DRUG ADMINISTRATION RATE [None]
  - INFLAMMATION [None]
  - OVERDOSE [None]
  - POST PROCEDURAL COMPLICATION [None]
  - RENAL CYST INFECTION [None]
  - RENAL FAILURE [None]
  - STATUS EPILEPTICUS [None]
